FAERS Safety Report 4844912-3 (Version None)
Quarter: 2005Q4

REPORT INFORMATION
  Report Type: 
  Country: None (occurrence: None)
  Receive Date: 20051128
  Receipt Date: 20051111
  Transmission Date: 20060501
  Serious: Yes (Hospitalization, Disabling)
  Sender: FDA-Public Use
  Company Number: CLOF-10138

PATIENT
  Age: 68 Year
  Sex: Female

DRUGS (17)
  1. CLOFARABINE [Suspect]
     Indication: ACUTE MYELOID LEUKAEMIA
     Dosage: 65 MG QD X 5 IV
     Route: 042
     Dates: start: 20050212
  2. CYTARABINE [Suspect]
     Indication: ACUTE MYELOID LEUKAEMIA
     Dosage: 43 MG QD SC
     Route: 058
     Dates: start: 20050212
  3. MERREM [Concomitant]
  4. PRAVASTATIN [Concomitant]
  5. VALTREX [Concomitant]
  6. AMIODIPINE [Concomitant]
  7. DOXAZOSIN [Concomitant]
  8. HYDROCHLORITHIAZIDE [Concomitant]
  9. CARVEDILOL [Concomitant]
  10. VORICONAZOLE [Concomitant]
  11. CLONIDINE [Concomitant]
  12. TYLENOL [Concomitant]
  13. TEMAZEPAM [Concomitant]
  14. DIPHENOXYLATE [Concomitant]
  15. INSULIN [Concomitant]
  16. CASPOFUNGIN [Concomitant]
  17. HYDROCORTISONE [Concomitant]

REACTIONS (3)
  - DIALYSIS [None]
  - INFECTION [None]
  - RENAL FAILURE [None]
